FAERS Safety Report 6840448-9 (Version None)
Quarter: 2010Q3

REPORT INFORMATION
  Report Type: 
  Country: None (occurrence: None)
  Receive Date: 20100714
  Receipt Date: 20100630
  Transmission Date: 20110219
  Serious: Yes (Death)
  Sender: FDA-Public Use
  Company Number: US-PFIZER INC-2009238414

PATIENT
  Sex: Female

DRUGS (2)
  1. REVATIO [Suspect]
     Dosage: UNK
     Route: 048
  2. TRACLEER [Suspect]
     Dosage: UNK
     Route: 048

REACTIONS (1)
  - DEATH [None]
